FAERS Safety Report 7215087-0 (Version None)
Quarter: 2011Q1

REPORT INFORMATION
  Report Type: 
  Country: None (occurrence: None)
  Receive Date: 20110107
  Receipt Date: 20100809
  Transmission Date: 20110831
  Serious: No
  Sender: FDA-Public Use
  Company Number: A0876370A

PATIENT
  Sex: Male

DRUGS (3)
  1. LOVAZA [Suspect]
     Route: 065
  2. TENORMIN [Concomitant]
     Indication: BLOOD PRESSURE
  3. EXFORGE [Concomitant]

REACTIONS (2)
  - DRUG INEFFECTIVE [None]
  - BLOOD TRIGLYCERIDES INCREASED [None]
